FAERS Safety Report 5966834-7 (Version None)
Quarter: 2008Q4

REPORT INFORMATION
  Report Type: 
  Country: None (occurrence: None)
  Receive Date: 20081125
  Receipt Date: 20081124
  Transmission Date: 20090506
  Serious: Yes (Other)
  Sender: FDA-Public Use
  Company Number: US-ROXANE LABORATORIES, INC.-2008-RO-00274RO

PATIENT
  Age: 46 Year
  Sex: Female

DRUGS (3)
  1. ROPINIROLE [Suspect]
     Indication: PARKINSON'S DISEASE
  2. LEVODOPA [Concomitant]
     Indication: PARKINSON'S DISEASE
  3. ACAMPROSATE [Concomitant]
     Indication: IMPULSE-CONTROL DISORDER
     Dosage: 1998MG

REACTIONS (4)
  - BINGE EATING [None]
  - COMPULSIVE SHOPPING [None]
  - FOOD CRAVING [None]
  - IMPULSE-CONTROL DISORDER [None]
